FAERS Safety Report 9260733 (Version 1)
Quarter: 2013Q2

REPORT INFORMATION
  Report Type: Spontaneous
  Country: KR (occurrence: KR)
  Receive Date: 20130429
  Receipt Date: 20130429
  Transmission Date: 20140414
  Serious: Yes (Death, Life-Threatening, Hospitalization)
  Sender: FDA-Public Use
  Company Number: KR-ELI_LILLY_AND_COMPANY-KR201304007234

PATIENT
  Age: 68 Year
  Sex: Male

DRUGS (7)
  1. ABCIXIMAB [Suspect]
     Indication: STENT PLACEMENT
     Dosage: 0.25 MG/KG, UNK
     Route: 042
  2. ABCIXIMAB [Suspect]
     Dosage: 0.125 UNK, UNK
  3. ENOXAPARIN [Concomitant]
     Dosage: 60 MG, UNK
     Route: 058
  4. ASPIRIN [Concomitant]
     Dosage: 500 MG, UNK
  5. CLOPIDOGREL [Concomitant]
     Dosage: 600 MG, UNK
  6. ATORVASTATIN [Concomitant]
  7. HEPARIN [Concomitant]
     Dosage: 4000 IU, UNK
     Route: 042

REACTIONS (4)
  - Septic shock [Fatal]
  - Pulmonary alveolar haemorrhage [Unknown]
  - Cardiogenic shock [Recovered/Resolved]
  - Staphylococcus test [Unknown]
